FAERS Safety Report 8864166 (Version 1)
Quarter: 2012Q4

REPORT INFORMATION
  Report Type: 
  Country: US (occurrence: US)
  Receive Date: 20121024
  Receipt Date: 20121024
  Transmission Date: 20130627
  Serious: No
  Sender: FDA-Public Use
  Company Number: US-AMGEN-USASP2011066113

PATIENT
  Sex: Male

DRUGS (5)
  1. ENBREL [Suspect]
     Indication: PRODUCT USED FOR UNKNOWN INDICATION
     Dosage: 50 mg, qwk
  2. ZOCOR [Concomitant]
     Dosage: 10 mg, UNK
  3. LISINOPRIL [Concomitant]
     Dosage: 2.5 mg, UNK
  4. ASPIRIN [Concomitant]
     Dosage: 81 mg, UNK
  5. LEVOXYL [Concomitant]
     Dosage: 25 mug, UNK

REACTIONS (1)
  - Rash [Unknown]
